FAERS Safety Report 18688995 (Version 1)
Quarter: 2020Q4

REPORT INFORMATION
  Report Type: Spontaneous
  Country: US (occurrence: US)
  Receive Date: 20201231
  Receipt Date: 20201231
  Transmission Date: 20210114
  Serious: Yes (Hospitalization, Other)
  Sender: FDA-Public Use
  Company Number: NVSC2020US343350

PATIENT
  Age: 26 Year
  Sex: Female

DRUGS (1)
  1. BUPROPION. [Suspect]
     Active Substance: BUPROPION
     Indication: PRODUCT USED FOR UNKNOWN INDICATION
     Dosage: UNKNOWN AMOUNT
     Route: 065

REACTIONS (4)
  - Pneumatosis intestinalis [Recovered/Resolved]
  - Faecaloma [Recovered/Resolved]
  - Intestinal ischaemia [Recovered/Resolved]
  - Overdose [Unknown]
